FAERS Safety Report 11825632 (Version 1)
Quarter: 2015Q4

REPORT INFORMATION
  Report Type: Spontaneous
  Country: HR (occurrence: HR)
  Receive Date: 20151211
  Receipt Date: 20151211
  Transmission Date: 20160305
  Serious: Yes (Death, Life-Threatening)
  Sender: FDA-Public Use
  Company Number: HR-ORION CORPORATION ORION PHARMA-ENT 2015-1048

PATIENT
  Age: 67 Year
  Sex: Female
  Weight: 50 kg

DRUGS (7)
  1. REGLAN [Concomitant]
     Active Substance: METOCLOPRAMIDE HYDROCHLORIDE
     Route: 065
  2. DOXORUBICIN [Interacting]
     Active Substance: DOXORUBICIN
     Indication: BREAST CANCER
     Route: 065
     Dates: start: 201509
  3. NAKOM [Interacting]
     Active Substance: CARBIDOPA\LEVODOPA
     Indication: PARKINSON^S DISEASE
     Route: 048
     Dates: start: 20151009
  4. COMTAN [Suspect]
     Active Substance: ENTACAPONE
     Indication: PARKINSON^S DISEASE
     Route: 048
     Dates: start: 20141009
  5. COMTAN [Interacting]
     Active Substance: ENTACAPONE
     Dosage: DOSE REDUCED
     Route: 065
  6. BRUFEN [Concomitant]
     Active Substance: IBUPROFEN
     Route: 065
  7. ACIPAN [Concomitant]
     Active Substance: PANTOPRAZOLE SODIUM
     Route: 065

REACTIONS (4)
  - Psychotic disorder [Fatal]
  - Dyskinesia [Fatal]
  - Hallucination [Fatal]
  - Drug interaction [Fatal]

NARRATIVE: CASE EVENT DATE: 20150901
